FAERS Safety Report 6120958-2 (Version None)
Quarter: 2009Q1

REPORT INFORMATION
  Report Type: 
  Country: None (occurrence: None)
  Receive Date: 20090312
  Receipt Date: 20090312
  Transmission Date: 20090719
  Serious: Yes (Life-Threatening, Hospitalization)
  Sender: FDA-Public Use
  Company Number: None

PATIENT
  Sex: Female
  Weight: 51 kg

DRUGS (10)
  1. DOXYCYCLINE [Suspect]
  2. OMEPRAZOLE [Concomitant]
  3. MAALOX [Concomitant]
  4. SUCRALFATE ELIXIR [Concomitant]
  5. CALCIUM [Concomitant]
  6. VITAMIN D [Concomitant]
  7. ULTRAM [Concomitant]
  8. NEXIUM [Concomitant]
  9. CARAFATE [Concomitant]
  10. TYLENOL [Concomitant]

REACTIONS (8)
  - ANURIA [None]
  - CHEST PAIN [None]
  - DIZZINESS [None]
  - DYSPEPSIA [None]
  - MUSCLE SPASMS [None]
  - NO THERAPEUTIC RESPONSE [None]
  - ODYNOPHAGIA [None]
  - PANCREATITIS [None]
